FAERS Safety Report 9044872 (Version 1)
Quarter: 2013Q1

REPORT INFORMATION
  Report Type: Spontaneous
  Country: MX (occurrence: MX)
  Receive Date: 20130130
  Receipt Date: 20130130
  Transmission Date: 20140127
  Serious: Yes (Death)
  Sender: FDA-Public Use
  Company Number: MX-GLAXOSMITHKLINE-A1009744A

PATIENT
  Sex: Female
  Weight: 37 kg

DRUGS (2)
  1. SERETIDE [Suspect]
     Indication: CHRONIC OBSTRUCTIVE PULMONARY DISEASE
     Route: 065
     Dates: start: 2010, end: 201202
  2. UNSPECIFIED MEDICATION [Concomitant]
     Indication: NERVOUSNESS

REACTIONS (1)
  - Death [Fatal]
